FAERS Safety Report 16898385 (Version 2)
Quarter: 2024Q3

REPORT INFORMATION
  Report Type: Report from Study
  Country: DE (occurrence: DE)
  Receive Date: 20191009
  Receipt Date: 20240815
  Transmission Date: 20241017
  Serious: Yes (Congenital Anomaly)
  Sender: TEVA
  Company Number: DE-TEVA-2019-DE-1118962

PATIENT

DRUGS (2)
  1. LACOSAMIDE [Suspect]
     Active Substance: LACOSAMIDE
     Indication: Drug therapy
     Dosage: THE MOTHER RECEIVED LACOSAMIDE DAILY FOR EPILEPSY DURING HER PREGNANCY.
     Route: 064
  2. VALPROATE [Suspect]
     Active Substance: VALPROIC ACID
     Indication: Drug therapy
     Dosage: THE MOTHER RECEIVED VALPROATE FOR EPILEPSY DURING HER PREGNANCY
     Route: 064

REACTIONS (2)
  - Aberrant aortic arch [Unknown]
  - Foetal exposure during pregnancy [Unknown]
